FAERS Safety Report 7920401-4 (Version None)
Quarter: 2011Q4

REPORT INFORMATION
  Report Type: 
  Country: None (occurrence: None)
  Receive Date: 20111117
  Receipt Date: 20111104
  Transmission Date: 20120403
  Serious: Yes (Hospitalization, Other)
  Sender: FDA-Public Use
  Company Number: PHHY2011FR86949

PATIENT
  Sex: Female
  Weight: 49 kg

DRUGS (12)
  1. DIAMICRON [Concomitant]
     Indication: DIABETES MELLITUS
     Dosage: 30 MG, QD
     Dates: start: 19910101, end: 20110928
  2. AN UNSPECIFIED STATIN [Concomitant]
  3. ATORVASTATIN CALCIUM [Concomitant]
     Indication: HYPERCHOLESTEROLAEMIA
     Dosage: 1 DF,
  4. ESOMEPRAZOLE [Concomitant]
  5. NOCTAMID [Concomitant]
     Indication: ARTHRALGIA
     Dates: end: 20110917
  6. METHIMAZOLE [Suspect]
     Dosage: 20 MG, QD
     Route: 048
     Dates: start: 20110601, end: 20110917
  7. GLUCOPHAGE [Concomitant]
     Indication: DIABETES MELLITUS
     Dosage: 850 MG, TID
     Dates: start: 19910101, end: 20111006
  8. ESIDRIX [Concomitant]
     Indication: HYPERTENSION
     Dosage: 25 MG, QD
     Dates: end: 20110928
  9. LEVOTHYROXINE SODIUM [Concomitant]
     Dosage: 1 DF,
     Dates: end: 20110917
  10. RASILEZ [Suspect]
     Indication: HYPERTENSION
     Dosage: 300 MG, DAILY
     Route: 048
     Dates: start: 20110801, end: 20110928
  11. FELODIPINE [Concomitant]
     Indication: HYPERTENSION
     Dates: end: 20110928
  12. METHIMAZOLE [Suspect]
     Indication: HYPERTHYROIDISM
     Dosage: 10 MG, QD
     Route: 048
     Dates: end: 20110201

REACTIONS (5)
  - BONE MARROW FAILURE [None]
  - HAEMOGLOBIN DECREASED [None]
  - ASTHENIA [None]
  - HAEMATOMA [None]
  - PANCYTOPENIA [None]
